FAERS Safety Report 4504453-X (Version None)
Quarter: 2004Q4

REPORT INFORMATION
  Report Type: 
  Country: None (occurrence: None)
  Receive Date: 20041117
  Receipt Date: 20041117
  Transmission Date: 20050328
  Serious: Yes (Other)
  Sender: FDA-Public Use
  Company Number: None

PATIENT
  Age: 72 Year
  Sex: Male
  Weight: 110.2241 kg

DRUGS (4)
  1. PHENYTOIN ERC 100 MG MYLAN [Suspect]
     Indication: COMPLEX PARTIAL SEIZURES
     Dosage: 200 MG ALT W/300 MG AM 300 MG Q HS [ MANY YEARS]
  2. ASPIRIN [Concomitant]
  3. FUROSEMIDE [Concomitant]
  4. METOPROLOL [Concomitant]

REACTIONS (1)
  - DRUG LEVEL DECREASED [None]
